FAERS Safety Report 9413737 (Version 1)
Quarter: 2013Q3

REPORT INFORMATION
  Report Type: Spontaneous
  Country: US (occurrence: US)
  Receive Date: 20130722
  Receipt Date: 20130722
  Transmission Date: 20140515
  Serious: Yes (Other)
  Sender: FDA-Public Use
  Company Number: US-JNJFOC-20130709338

PATIENT
  Sex: 0

DRUGS (4)
  1. FAMOTIDINE [Suspect]
     Route: 048
  2. FAMOTIDINE [Suspect]
     Indication: GASTRIC PH INCREASED
     Dosage: 40MG DOSE GIVEN 2 HOURS AFTER AND 10 HOURS BEFORE DASATINIB 50MG
     Route: 048
  3. DASATINIB [Interacting]
     Indication: PRODUCT USED FOR UNKNOWN INDICATION
     Route: 048
  4. MAALOX [Concomitant]
     Indication: ANTACID THERAPY
     Dosage: 30ML DOSE GIVEN 2 HOURS BEFORE AND CONCOMITANTLY WITH DASATINIB 50MG
     Route: 065

REACTIONS (3)
  - Drug interaction [Unknown]
  - Electrocardiogram abnormal [Unknown]
  - Headache [Unknown]
